FAERS Safety Report 24523877 (Version 2)
Quarter: 2024Q4

REPORT INFORMATION
  Report Type: Spontaneous
  Country: US (occurrence: US)
  Receive Date: 20241018
  Receipt Date: 20241028
  Transmission Date: 20250114
  Serious: Yes (Hospitalization)
  Sender: BIOGEN
  Company Number: US-BIOGEN-2024BI01286752

PATIENT
  Sex: Female

DRUGS (1)
  1. TYSABRI [Suspect]
     Active Substance: NATALIZUMAB
     Indication: Multiple sclerosis
     Route: 050

REACTIONS (4)
  - Gait inability [Unknown]
  - Dysgraphia [Unknown]
  - Nervousness [Unknown]
  - Pain [Unknown]
